FAERS Safety Report 6547247-6 (Version None)
Quarter: 2010Q1

REPORT INFORMATION
  Report Type: 
  Country: None (occurrence: None)
  Receive Date: 20100122
  Receipt Date: 20100115
  Transmission Date: 20100710
  Serious: Yes (Hospitalization)
  Sender: FDA-Public Use
  Company Number: DK-TEVA-221146ISR

PATIENT
  Sex: Female

DRUGS (2)
  1. METHOTREXATE [Suspect]
     Indication: POLYMYALGIA RHEUMATICA
     Dates: start: 20091110
  2. PREDNISOLONE [Concomitant]

REACTIONS (1)
  - ATRIAL FIBRILLATION [None]
